FAERS Safety Report 14992652 (Version 1)
Quarter: 2018Q2

REPORT INFORMATION
  Report Type: Spontaneous
  Country: DE (occurrence: DE)
  Receive Date: 20180609
  Receipt Date: 20180609
  Transmission Date: 20180711
  Serious: Yes (Hospitalization)
  Sender: FDA-Public Use
  Company Number: DE-TEVA-2018-DE-902120

PATIENT
  Age: 73 Year
  Sex: Female
  Weight: 96 kg

DRUGS (11)
  1. KALIUMCHLORID [Suspect]
     Active Substance: POTASSIUM CHLORIDE
     Dosage: 2-0-0-0
     Route: 048
  2. ALLOPURINOL. [Concomitant]
     Active Substance: ALLOPURINOL
     Dosage: 1-0-0-0
     Route: 048
  3. COLECALCIFEROL [Concomitant]
     Active Substance: CHOLECALCIFEROL
     Dosage: 0-1-0-0
     Route: 048
  4. AMIODARON [Suspect]
     Active Substance: AMIODARONE
     Dosage: 1-0-0-0
     Route: 048
  5. AMLODIPIN [Suspect]
     Active Substance: AMLODIPINE BESYLATE
     Dosage: 1-0-0-0
     Route: 048
  6. PANTOPRAZOL [Concomitant]
     Active Substance: PANTOPRAZOLE SODIUM
     Dosage: 1-0-0-0
     Route: 048
  7. LEVOTHYROXIN [Concomitant]
     Active Substance: LEVOTHYROXINE
     Dosage: 1-0-0-0
     Route: 048
  8. INDAPAMID [Concomitant]
     Active Substance: INDAPAMIDE
     Dosage: 0-1-0-0
     Route: 048
  9. SIMVASTATIN. [Concomitant]
     Active Substance: SIMVASTATIN
     Dosage: 0-0-1-0
     Route: 048
  10. FUROSEMID [Suspect]
     Active Substance: FUROSEMIDE
     Dosage: 1-0-0-0
     Route: 048
  11. APIXABAN [Concomitant]
     Active Substance: APIXABAN
     Dosage: 1-0-1-0
     Route: 048

REACTIONS (3)
  - Dizziness [Unknown]
  - Nausea [Unknown]
  - Bradycardia [Unknown]
